FAERS Safety Report 16539289 (Version 1)
Quarter: 2019Q3

REPORT INFORMATION
  Report Type: Spontaneous
  Country: CA (occurrence: CA)
  Receive Date: 20190708
  Receipt Date: 20190708
  Transmission Date: 20191004
  Serious: Yes (Other)
  Sender: FDA-Public Use
  Company Number: CA-PFIZER INC-2019280434

PATIENT

DRUGS (2)
  1. SYNTHROID [Concomitant]
     Active Substance: LEVOTHYROXINE SODIUM
     Dosage: 50 MG, UNK
  2. CYTOMEL [Suspect]
     Active Substance: LIOTHYRONINE SODIUM
     Indication: THYROID DISORDER
     Dosage: 12.5 UG, UNK

REACTIONS (10)
  - Asthenia [Unknown]
  - Tremor [Unknown]
  - Cyanosis [Unknown]
  - Blood pressure fluctuation [Unknown]
  - Myocardial infarction [Unknown]
  - Drug ineffective [Unknown]
  - Cardiac disorder [Unknown]
  - Heart rate variability increased [Unknown]
  - Body temperature fluctuation [Unknown]
  - Tri-iodothyronine decreased [Unknown]
